FAERS Safety Report 9057026 (Version 1)
Quarter: 2013Q1

REPORT INFORMATION
  Report Type: Spontaneous
  Country: PR (occurrence: PR)
  Receive Date: 20130131
  Receipt Date: 20130131
  Transmission Date: 20140127
  Serious: No
  Sender: FDA-Public Use
  Company Number: PR-ABBOTT-12P-131-0967245-00

PATIENT
  Age: 34 None
  Sex: Female
  Weight: 69.92 kg

DRUGS (4)
  1. HUMIRA [Suspect]
     Indication: SACROILIITIS
     Route: 058
     Dates: start: 201204, end: 201205
  2. HUMIRA [Suspect]
     Route: 058
     Dates: start: 201206, end: 20120728
  3. METHOTREXATE [Concomitant]
     Indication: PRODUCT USED FOR UNKNOWN INDICATION
     Dosage: 0.8G ONCE A WEEK
     Route: 030
  4. PREDNISONE [Concomitant]
     Indication: PRODUCT USED FOR UNKNOWN INDICATION
     Dosage: 50MG 1 TABLET DAILY
     Route: 048
     Dates: start: 20120806

REACTIONS (3)
  - Off label use [Not Recovered/Not Resolved]
  - Bronchitis [Recovering/Resolving]
  - Nasopharyngitis [Unknown]
